FAERS Safety Report 6190617-9 (Version None)
Quarter: 2009Q2

REPORT INFORMATION
  Report Type: 
  Country: None (occurrence: None)
  Receive Date: 20090514
  Receipt Date: 20090320
  Transmission Date: 20091009
  Serious: No
  Sender: FDA-Public Use
  Company Number: US-BRISTOL-MYERS SQUIBB COMPANY-14554778

PATIENT
  Age: 49 Year
  Sex: Female

DRUGS (3)
  1. IXEMPRA KIT [Suspect]
     Indication: BREAST CANCER METASTATIC
  2. XELODA [Concomitant]
  3. AVASTIN [Concomitant]

REACTIONS (2)
  - FATIGUE [None]
  - HYPOTENSION [None]
